FAERS Safety Report 25454110 (Version 4)
Quarter: 2025Q3

REPORT INFORMATION
  Report Type: Report from Study
  Country: US (occurrence: US)
  Receive Date: 20250619
  Receipt Date: 20250910
  Transmission Date: 20251020
  Serious: Yes (Other)
  Sender: UPSHER SMITH LABORATORIES
  Company Number: US-UPSHER-SMITH LABORATORIES, LLC-20250600920

PATIENT
  Age: 32 Year
  Sex: Female

DRUGS (5)
  1. ISOTRETINOIN [Suspect]
     Active Substance: ISOTRETINOIN
     Indication: Product used for unknown indication
     Route: 065
     Dates: start: 20250210, end: 20250502
  2. ISOTRETINOIN [Suspect]
     Active Substance: ISOTRETINOIN
     Route: 065
     Dates: start: 20250212, end: 20250502
  3. MYORISAN [Concomitant]
     Active Substance: ISOTRETINOIN
     Indication: Product used for unknown indication
     Route: 065
  4. MYORISAN [Concomitant]
     Active Substance: ISOTRETINOIN
     Route: 065
  5. CLARAVIS [Concomitant]
     Active Substance: ISOTRETINOIN
     Indication: Product used for unknown indication
     Route: 065

REACTIONS (1)
  - Exposure during pregnancy [Unknown]

NARRATIVE: CASE EVENT DATE: 20250612
